FAERS Safety Report 13880693 (Version 2)
Quarter: 2019Q1

REPORT INFORMATION
  Report Type: Spontaneous
  Country: US (occurrence: US)
  Receive Date: 20170818
  Receipt Date: 20190219
  Transmission Date: 20190417
  Serious: Yes (Life-Threatening, Hospitalization, Other)
  Sender: FDA-Public Use
  Company Number: US-ACCORD-057143

PATIENT
  Age: 29 Year
  Sex: Female

DRUGS (5)
  1. SPIRONOLACTONE. [Suspect]
     Active Substance: SPIRONOLACTONE
     Indication: CONGESTIVE CARDIOMYOPATHY
  2. IVABRADINE/IVABRADINE HYDROCHLORIDE [Interacting]
     Active Substance: IVABRADINE HYDROCHLORIDE
     Indication: CONGESTIVE CARDIOMYOPATHY
     Dosage: ON INITIAL DOSE AND LATER INCREASED FOR BETTER HEART RATE CONTROL
  3. FUROSEMIDE. [Suspect]
     Active Substance: FUROSEMIDE
     Indication: CONGESTIVE CARDIOMYOPATHY
  4. METOPROLOL. [Interacting]
     Active Substance: METOPROLOL
     Indication: CONGESTIVE CARDIOMYOPATHY
  5. LISINOPRIL. [Suspect]
     Active Substance: LISINOPRIL
     Indication: CONGESTIVE CARDIOMYOPATHY

REACTIONS (7)
  - Cardio-respiratory arrest [Unknown]
  - Drug interaction [Unknown]
  - Electrocardiogram QT prolonged [Unknown]
  - Ventricular fibrillation [Unknown]
  - Sinus bradycardia [None]
  - Angina pectoris [None]
  - Torsade de pointes [Unknown]
